FAERS Safety Report 14331135 (Version 2)
Quarter: 2017Q4

REPORT INFORMATION
  Report Type: Report from Study
  Country: CN (occurrence: CN)
  Receive Date: 20171228
  Receipt Date: 20171228
  Transmission Date: 20180321
  Serious: Yes (Other)
  Sender: FDA-Public Use
  Company Number: CN-ROCHE-2024221

PATIENT
  Sex: Male
  Weight: 80 kg

DRUGS (1)
  1. AVASTIN [Suspect]
     Active Substance: BEVACIZUMAB
     Indication: COLORECTAL CANCER
     Route: 041
     Dates: start: 20161128

REACTIONS (2)
  - Intestinal obstruction [Recovering/Resolving]
  - General physical health deterioration [Recovering/Resolving]
